FAERS Safety Report 9936990 (Version 1)
Quarter: 2014Q1

REPORT INFORMATION
  Report Type: Spontaneous
  Country: US (occurrence: None)
  Receive Date: 20140122
  Receipt Date: 20140122
  Transmission Date: 20141002
  Serious: No
  Sender: FDA-Public Use
  Company Number: AP356-00139-SPO-US

PATIENT
  Sex: Female
  Weight: 90.9 kg

DRUGS (4)
  1. BELVIQ (LORCASERIN HYDROCHLORIDE) [Suspect]
     Indication: OBESITY
     Route: 048
     Dates: start: 20130925, end: 20130930
  2. SYNTHROID (LEVOTHYROXINE SODIUM) [Concomitant]
  3. CITALOPRAM (CITALOPRAM) [Concomitant]
  4. ATORVASTATIN (ATORVASTATIN) [Concomitant]

REACTIONS (2)
  - Weight increased [None]
  - Constipation [None]
